FAERS Safety Report 11189938 (Version 1)
Quarter: 2015Q2

REPORT INFORMATION
  Report Type: Spontaneous
  Country: US (occurrence: US)
  Receive Date: 20150615
  Receipt Date: 20150615
  Transmission Date: 20150821
  Serious: No
  Sender: FDA-Public Use
  Company Number: US-BAXTER-2015BAX030328

PATIENT
  Sex: Male

DRUGS (1)
  1. STERILE WATER FOR INJECTION [Suspect]
     Active Substance: WATER
     Indication: HAEMODIALYSIS
     Route: 010

REACTIONS (2)
  - Wrong drug administered [Unknown]
  - Dizziness [Unknown]
